FAERS Safety Report 10225008 (Version 2)
Quarter: 2014Q2

REPORT INFORMATION
  Report Type: Spontaneous
  Country: US (occurrence: US)
  Receive Date: 20140609
  Receipt Date: 20140625
  Transmission Date: 20141212
  Serious: Yes (Hospitalization, Other)
  Sender: FDA-Public Use
  Company Number: US-SHIRE-20140528CINRY6551

PATIENT
  Sex: Male
  Weight: 69.39 kg

DRUGS (5)
  1. CINRYZE [Suspect]
     Indication: HEREDITARY ANGIOEDEMA
     Dosage: 1000 UNITS (TWO 500 IU VIALS), AS REQ^D
     Route: 042
  2. CINRYZE [Suspect]
     Indication: PROPHYLAXIS
  3. ANTICOAG (BLOOD THINNERS) [Concomitant]
     Indication: MYOCARDIAL INFARCTION
     Dosage: UNK, UNKNOWN
     Route: 065
     Dates: start: 201405
  4. ANTICOAG (BLOOD THINNERS) [Concomitant]
     Indication: THROMBOSIS
  5. ANTICOAG (BLOOD THINNERS) [Concomitant]
     Indication: ATRIAL FIBRILLATION

REACTIONS (9)
  - Aortic disorder [Unknown]
  - Fall [Unknown]
  - Dysstasia [Unknown]
  - Atrial fibrillation [Unknown]
  - Dyspnoea [Unknown]
  - Myocardial infarction [Unknown]
  - Pulmonary embolism [Recovered/Resolved]
  - Dizziness [Unknown]
  - Off label use [Unknown]
